FAERS Safety Report 14968944 (Version 1)
Quarter: 2018Q2

REPORT INFORMATION
  Report Type: Spontaneous
  Country: US (occurrence: US)
  Receive Date: 20180511
  Receipt Date: 20180511
  Transmission Date: 20180711
  Serious: No
  Sender: FDA-Public Use
  Company Number: None

PATIENT
  Age: 68 Year
  Sex: Female

DRUGS (4)
  1. CITALOPRAM [Concomitant]
     Active Substance: CITALOPRAM HYDROBROMIDE
  2. TYLENOL [Concomitant]
     Active Substance: ACETAMINOPHEN
  3. ATENOLOL. [Concomitant]
     Active Substance: ATENOLOL
  4. CAPECITABINE 500MG [Suspect]
     Active Substance: CAPECITABINE
     Indication: BREAST CANCER FEMALE
     Route: 048
     Dates: start: 20180412

REACTIONS (2)
  - Dehydration [None]
  - Diarrhoea [None]

NARRATIVE: CASE EVENT DATE: 20180429
